FAERS Safety Report 7276218-X (Version None)
Quarter: 2011Q1

REPORT INFORMATION
  Report Type: 
  Country: None (occurrence: None)
  Receive Date: 20110204
  Receipt Date: 20110128
  Transmission Date: 20110831
  Serious: Yes (Other)
  Sender: FDA-Public Use
  Company Number: PHHY2010US50305

PATIENT
  Sex: Male

DRUGS (10)
  1. EXTAVIA [Suspect]
     Dosage: 0.25 MG
     Route: 058
     Dates: start: 20100719
  2. ALEVE [Concomitant]
  3. MORPHINE [Concomitant]
     Dosage: UNK
  4. TRILIPIX [Concomitant]
  5. LYRICA [Concomitant]
  6. NOVANTRONE [Concomitant]
     Dosage: UNK
  7. LORTAB [Concomitant]
     Dosage: UNK
  8. FORTEO [Concomitant]
  9. BACLOFEN [Concomitant]
  10. EXTAVIA [Suspect]
     Indication: MULTIPLE SCLEROSIS
     Dosage: 0.30 MG, QOD
     Route: 058
     Dates: start: 20100710

REACTIONS (19)
  - BRONCHITIS [None]
  - FEELING ABNORMAL [None]
  - ASTHENIA [None]
  - HYPERHIDROSIS [None]
  - DYSPNOEA [None]
  - MALAISE [None]
  - PYREXIA [None]
  - DIARRHOEA [None]
  - CHRONIC OBSTRUCTIVE PULMONARY DISEASE [None]
  - GAIT DISTURBANCE [None]
  - LIMB DISCOMFORT [None]
  - INFLUENZA LIKE ILLNESS [None]
  - MYALGIA [None]
  - PNEUMONIA [None]
  - QUALITY OF LIFE DECREASED [None]
  - CHILLS [None]
  - ABDOMINAL PAIN UPPER [None]
  - FEELING OF BODY TEMPERATURE CHANGE [None]
  - FATIGUE [None]
